FAERS Safety Report 8861022 (Version 1)
Quarter: 2012Q4

REPORT INFORMATION
  Report Type: 
  Country: US (occurrence: US)
  Receive Date: 20121025
  Receipt Date: 20121025
  Transmission Date: 20130627
  Serious: No
  Sender: FDA-Public Use
  Company Number: US-AMGEN-USASP2012012721

PATIENT
  Sex: Female

DRUGS (6)
  1. ENBREL [Suspect]
     Indication: PRODUCT USED FOR UNKNOWN INDICATION
     Dosage: 50 mg, qwk
  2. METHOTREXATE [Concomitant]
     Dosage: UNK
  3. FOLIC ACID [Concomitant]
     Dosage: UNK
  4. IRON [Concomitant]
     Dosage: UNK
  5. VITAMIN D                          /00318501/ [Concomitant]
     Dosage: UNK
  6. SULFASALAZINE [Concomitant]
     Dosage: UNK

REACTIONS (3)
  - Dizziness [Unknown]
  - Visual impairment [Unknown]
  - Hyperhidrosis [Unknown]
